FAERS Safety Report 4818407-7 (Version None)
Quarter: 2005Q4

REPORT INFORMATION
  Report Type: 
  Country: None (occurrence: None)
  Receive Date: 20051031
  Receipt Date: 20051012
  Transmission Date: 20060501
  Serious: Yes (Hospitalization)
  Sender: FDA-Public Use
  Company Number: 216201

PATIENT
  Age: 68 Year
  Sex: Female
  Weight: 111.2 kg

DRUGS (16)
  1. AVASTIN [Suspect]
     Indication: COLON CANCER
     Dosage: 556 MG, Q2W, INTRAVENOUS
     Route: 042
     Dates: start: 20050623, end: 20050719
  2. OXALIPLATIN (OXALIPLATIN) [Suspect]
     Indication: COLON CANCER
     Dosage: 143 MG, Q2W, INTRAVENOUS
     Route: 042
     Dates: start: 20050623, end: 20050719
  3. FLUOROURACIL [Suspect]
     Indication: COLON CANCER
     Dosage: 660 MG, Q2W, INTRAVENOUS
     Route: 042
     Dates: start: 20050623, end: 20050720
  4. LEUCOVORIN CALCIUM [Suspect]
     Indication: COLON CANCER
     Dosage: 408 MG, Q2W, INTRAVENOUS
     Route: 042
     Dates: start: 20050623, end: 20050720
  5. PANTOLOC (PANTOPRAZOLE) [Concomitant]
  6. ARTHROTEC [Concomitant]
  7. LEVOTHYROXINE SODIUM [Concomitant]
  8. HCTZ (HYDROCHLOROTHIAZIDE) [Concomitant]
  9. FOSAMAX [Concomitant]
  10. DIOVAN [Concomitant]
  11. DOMPERIDONE (DOMPERIDONE) [Concomitant]
  12. MAXERAN (METOCLOPRAMIDE HYDROCHLORIDE) [Concomitant]
  13. LASIX [Concomitant]
  14. POTASSIUM CHLORIDE [Concomitant]
  15. MAGNESIUM-ROUGIER (MAGNESIUM GLUCEPTATE) [Concomitant]
  16. MOUTHWASH NOS (MOUTHWASH NOS) [Concomitant]

REACTIONS (5)
  - DIARRHOEA [None]
  - HYPOCALCAEMIA [None]
  - HYPOKALAEMIA [None]
  - HYPOMAGNESAEMIA [None]
  - SMALL INTESTINAL PERFORATION [None]
